FAERS Safety Report 6108586-6 (Version None)
Quarter: 2009Q1

REPORT INFORMATION
  Report Type: 
  Country: None (occurrence: None)
  Receive Date: 20090305
  Receipt Date: 20090218
  Transmission Date: 20090719
  Serious: Yes (Death, Hospitalization)
  Sender: FDA-Public Use
  Company Number: 2009000465

PATIENT
  Age: 41 Year
  Sex: Female

DRUGS (8)
  1. TARCEVA [Suspect]
     Indication: UTERINE LEIOMYOSARCOMA
     Dosage: ORAL
     Route: 048
     Dates: start: 20081118, end: 20081202
  2. IBUPROFEN TABLETS [Concomitant]
  3. FRAGMIN [Concomitant]
  4. ROCEPHIN [Concomitant]
  5. LASIX [Concomitant]
  6. NOVALGIN (METAMIZOLE SODIUM) [Concomitant]
  7. ISCADOR (MISTLETOE EXTRACT) [Concomitant]
  8. XEFO (LORNOXICAM) [Concomitant]

REACTIONS (9)
  - ACUTE ABDOMEN [None]
  - ASTHENIA [None]
  - DIARRHOEA [None]
  - FALL [None]
  - FEMORAL NECK FRACTURE [None]
  - MALIGNANT NEOPLASM PROGRESSION [None]
  - PATHOLOGICAL FRACTURE [None]
  - PYREXIA [None]
  - SARCOMA [None]
